FAERS Safety Report 8126318-7 (Version None)
Quarter: 2012Q1

REPORT INFORMATION
  Report Type: 
  Country: None (occurrence: None)
  Receive Date: 20120209
  Receipt Date: 20120202
  Transmission Date: 20120608
  Serious: Yes (Other)
  Sender: FDA-Public Use
  Company Number: US-ABBOTT-12P-163-0901664-00

PATIENT
  Sex: Male
  Weight: 99.88 kg

DRUGS (9)
  1. AMBIEN [Concomitant]
     Indication: INSOMNIA
  2. EPIVIR [Concomitant]
     Indication: HIV INFECTION
  3. CALCIUM WITH VITAMIN D [Concomitant]
     Indication: MINERAL SUPPLEMENTATION
  4. CALCIUM WITH VITAMIN D [Concomitant]
     Indication: VITAMIN SUPPLEMENTATION
  5. KALETRA [Suspect]
     Indication: HIV INFECTION
     Dates: start: 20020101
  6. CLARITIN [Concomitant]
     Indication: HYPERSENSITIVITY
  7. PLAVIX [Concomitant]
     Indication: THROMBOSIS PROPHYLAXIS
  8. ASPIRIN [Concomitant]
     Indication: CARDIAC DISORDER
  9. NORVASC [Concomitant]
     Indication: HYPERTENSION

REACTIONS (2)
  - DYSPHAGIA [None]
  - THROAT CANCER [None]
